FAERS Safety Report 15925833 (Version 1)
Quarter: 2019Q1

REPORT INFORMATION
  Report Type: Report from Study
  Country: US (occurrence: US)
  Receive Date: 20190206
  Receipt Date: 20190206
  Transmission Date: 20190417
  Serious: Yes (Hospitalization)
  Sender: FDA-Public Use
  Company Number: US-GILEAD-2019-0388926

PATIENT
  Age: 90 Year
  Sex: Male

DRUGS (26)
  1. FINASTERIDE. [Concomitant]
     Active Substance: FINASTERIDE
  2. LEUCOVORIN CA [Concomitant]
     Active Substance: LEUCOVORIN CALCIUM
  3. LOSARTAN. [Concomitant]
     Active Substance: LOSARTAN
  4. IRON [Concomitant]
     Active Substance: IRON
  5. LATANAPROST/TIMOLOL [Concomitant]
     Active Substance: LATANOPROST\TIMOLOL
  6. METHOTREXATE. [Concomitant]
     Active Substance: METHOTREXATE
  7. ACYCLOVIR ABBOTT VIAL [Concomitant]
  8. LEVOCETIRIZINE [Concomitant]
     Active Substance: LEVOCETIRIZINE
  9. MONTELUKAST [Concomitant]
     Active Substance: MONTELUKAST SODIUM
  10. OMEPRAZOLE. [Concomitant]
     Active Substance: OMEPRAZOLE
  11. FUROSEMIDE. [Concomitant]
     Active Substance: FUROSEMIDE
  12. IPRATROPIUM [Concomitant]
     Active Substance: IPRATROPIUM
  13. PREVALITE [Concomitant]
     Active Substance: CHOLESTYRAMINE
  14. PROAIR BRONQUIAL [Concomitant]
  15. PULMICORT TURBUHALER [Concomitant]
     Active Substance: BUDESONIDE
  16. TERAZOSIN [Concomitant]
     Active Substance: TERAZOSIN\TERAZOSIN HYDROCHLORIDE
  17. VITAMIN B12 + FOLIC ACID [Concomitant]
  18. AMBRISENTAN [Suspect]
     Active Substance: AMBRISENTAN
     Indication: PULMONARY ARTERIAL HYPERTENSION
     Dosage: 5 MG, QD
     Route: 065
     Dates: start: 20160209
  19. ALBUTEROL HFA [Concomitant]
     Active Substance: ALBUTEROL SULFATE
  20. CRESTOR [Concomitant]
     Active Substance: ROSUVASTATIN CALCIUM
  21. FOLIC ACID. [Concomitant]
     Active Substance: FOLIC ACID
  22. AMLODIPINE [Concomitant]
     Active Substance: AMLODIPINE BESYLATE
  23. VITAMIN D3 [Concomitant]
     Active Substance: CHOLECALCIFEROL
  24. ADCIRCA [Concomitant]
     Active Substance: TADALAFIL
  25. METFORMIN [Concomitant]
     Active Substance: METFORMIN HYDROCHLORIDE
  26. THEOPHYLLINE [Concomitant]
     Active Substance: THEOPHYLLINE ANHYDROUS

REACTIONS (2)
  - Gait disturbance [Unknown]
  - Dyspnoea [Unknown]
